FAERS Safety Report 23410307 (Version 2)
Quarter: 2024Q1

REPORT INFORMATION
  Report Type: Spontaneous
  Country: MX (occurrence: None)
  Receive Date: 20240117
  Receipt Date: 20240222
  Transmission Date: 20240410
  Serious: Yes (Other)
  Sender: FDA-Public Use
  Company Number: 2024A002160

PATIENT
  Age: 38 Year
  Sex: Female
  Weight: 75 kg

DRUGS (3)
  1. SYMBICORT [Suspect]
     Active Substance: BUDESONIDE\FORMOTEROL FUMARATE DIHYDRATE
     Indication: Asthma
     Dosage: 160/4.5 UG, 1 DOSE DAILY AT NIGHT
     Route: 055
     Dates: start: 2020
  2. SYMBICORT [Suspect]
     Active Substance: BUDESONIDE\FORMOTEROL FUMARATE DIHYDRATE
     Indication: Seasonal allergy
     Dosage: 160/4.5 UG, 1 DOSE DAILY AT NIGHT
     Route: 055
     Dates: start: 2020
  3. LINAGLIPTIN [Concomitant]
     Active Substance: LINAGLIPTIN
     Indication: Type 1 diabetes mellitus

REACTIONS (4)
  - Dyspnoea [Recovering/Resolving]
  - Helplessness [Unknown]
  - Off label use [Recovered/Resolved]
  - Device malfunction [Recovered/Resolved]

NARRATIVE: CASE EVENT DATE: 20200101
